FAERS Safety Report 17226652 (Version 1)
Quarter: 2020Q1

REPORT INFORMATION
  Report Type: Spontaneous
  Country: CA (occurrence: CA)
  Receive Date: 20200102
  Receipt Date: 20200102
  Transmission Date: 20200409
  Serious: Yes (Other)
  Sender: FDA-Public Use
  Company Number: CA-AUROBINDO-AUR-APL-2019-108146

PATIENT
  Age: 30 Year
  Sex: Female

DRUGS (10)
  1. AZATHIOPRINE. [Suspect]
     Active Substance: AZATHIOPRINE
     Indication: IMMUNOSUPPRESSION
     Dosage: 25 MILLIGRAM, ONCE A DAY
     Route: 065
  2. TACROLIMUS. [Suspect]
     Active Substance: TACROLIMUS
     Indication: IMMUNOSUPPRESSION
     Dosage: 14 MILLIGRAM, ONCE A DAY
     Route: 065
  3. GANCICLOVIR. [Suspect]
     Active Substance: GANCICLOVIR
     Dosage: 7 MILLIGRAM/KILOGRAM, TWO TIMES A DAY
     Route: 042
  4. LETERMOVIR [Suspect]
     Active Substance: LETERMOVIR
     Indication: CYTOMEGALOVIRUS VIRAEMIA
     Dosage: 480 MILLIGRAM, ONCE A DAY
     Route: 048
  5. GANCICLOVIR. [Suspect]
     Active Substance: GANCICLOVIR
     Indication: CYTOMEGALOVIRUS VIRAEMIA
     Dosage: 7 MILLIGRAM/KILOGRAM, TWO TIMES A DAY
     Route: 042
  6. GANCICLOVIR. [Suspect]
     Active Substance: GANCICLOVIR
     Dosage: 7 MILLIGRAM/KILOGRAM, TWO TIMES A DAY
     Route: 042
  7. VALGANCICLOVIR. [Suspect]
     Active Substance: VALGANCICLOVIR
     Indication: PROPHYLAXIS
     Dosage: UNK
     Route: 065
  8. PREDNISONE. [Suspect]
     Active Substance: PREDNISONE
     Indication: IMMUNOSUPPRESSION
     Dosage: 15 MILLIGRAM, ONCE A DAY
     Route: 065
  9. FOSCARNET SODIUM. [Suspect]
     Active Substance: FOSCARNET SODIUM
     Indication: CYTOMEGALOVIRUS VIRAEMIA
     Dosage: 180.0 MILLIGRAM/KILOGRAM, ONCE A DAY
     Route: 042
  10. GANCICLOVIR. [Suspect]
     Active Substance: GANCICLOVIR
     Indication: CYTOMEGALOVIRUS VIRAEMIA
     Dosage: 5.0 MILLIGRAM/KILOGRAM, TWO TIMES A DAY
     Route: 042

REACTIONS (3)
  - Haematotoxicity [Unknown]
  - Drug ineffective [Unknown]
  - Cytomegalovirus viraemia [Unknown]
